FAERS Safety Report 21743808 (Version 1)
Quarter: 2022Q4

REPORT INFORMATION
  Report Type: Spontaneous
  Country: US (occurrence: US)
  Receive Date: 20221217
  Receipt Date: 20221217
  Transmission Date: 20230113
  Serious: No
  Sender: FDA-Public Use
  Company Number: US-JNJFOC-20221214832

PATIENT
  Age: 39 Year
  Sex: Female

DRUGS (5)
  1. SPRAVATO [Suspect]
     Active Substance: ESKETAMINE
     Indication: Depression
     Dates: start: 20221128, end: 20221128
  2. SPRAVATO [Suspect]
     Active Substance: ESKETAMINE
     Dates: start: 20221129, end: 20221129
  3. SPRAVATO [Suspect]
     Active Substance: ESKETAMINE
     Dates: start: 20221130, end: 20221130
  4. CANNABIS SATIVA SUBSP. INDICA TOP [Suspect]
     Active Substance: CANNABIS SATIVA SUBSP. INDICA TOP
     Indication: Product used for unknown indication
     Route: 065
     Dates: start: 2022
  5. KLONOPIN [Concomitant]
     Active Substance: CLONAZEPAM

REACTIONS (8)
  - Sleep terror [Recovered/Resolved]
  - Night sweats [Recovered/Resolved]
  - Injury [Unknown]
  - Hangover [Unknown]
  - Abdominal discomfort [Unknown]
  - Decreased appetite [Not Recovered/Not Resolved]
  - Sedation [Recovered/Resolved]
  - Panic attack [Recovered/Resolved]

NARRATIVE: CASE EVENT DATE: 20221101
